FAERS Safety Report 21417130 (Version 2)
Quarter: 2022Q4

REPORT INFORMATION
  Report Type: Spontaneous
  Country: TR (occurrence: TR)
  Receive Date: 20221006
  Receipt Date: 20221019
  Transmission Date: 20230113
  Serious: Yes (Death)
  Sender: FDA-Public Use
  Company Number: TR-TEVA-2022-TR-2079809

PATIENT
  Age: 51 Year
  Sex: Male

DRUGS (10)
  1. METHOTREXATE [Suspect]
     Active Substance: METHOTREXATE
     Indication: Pericarditis
     Dosage: 1 DAY/WEEK
     Route: 065
  2. METHYLPREDNISOLONE [Suspect]
     Active Substance: METHYLPREDNISOLONE
     Indication: Rheumatoid arthritis
     Dosage: 1 MG/KG DAILY;
     Route: 048
  3. METHYLPREDNISOLONE [Suspect]
     Active Substance: METHYLPREDNISOLONE
     Route: 048
  4. METHYLPREDNISOLONE [Suspect]
     Active Substance: METHYLPREDNISOLONE
     Route: 048
  5. METHYLPREDNISOLONE [Suspect]
     Active Substance: METHYLPREDNISOLONE
     Route: 040
  6. COLCHICINE [Suspect]
     Active Substance: COLCHICINE
     Indication: Cardiac tamponade
     Route: 065
  7. IBUPROFEN [Suspect]
     Active Substance: IBUPROFEN
     Indication: Cardiac tamponade
     Route: 065
  8. HYDROXYCHLOROQUINE [Suspect]
     Active Substance: HYDROXYCHLOROQUINE
     Indication: Pericarditis
     Dosage: 2X200 MG/DAY, DIHYDROXYCHLOROQUINE SULFATE
     Route: 065
  9. FUROSEMIDE [Suspect]
     Active Substance: FUROSEMIDE
     Indication: Pericarditis
     Dosage: 40 MILLIGRAM DAILY;
     Route: 065
  10. RITUXIMAB [Concomitant]
     Active Substance: RITUXIMAB
     Indication: Cardiac tamponade
     Dosage: 1000 MILLIGRAM DAILY; AT 0 AND 14 DAYS
     Route: 042

REACTIONS (1)
  - Drug ineffective [Fatal]
